FAERS Safety Report 8239265 (Version 3)
Quarter: 2013Q3

REPORT INFORMATION
  Report Type: Report from Study
  Country: US (occurrence: US)
  Receive Date: 20111110
  Receipt Date: 20130816
  Transmission Date: 20140515
  Serious: Yes (Hospitalization, Other)
  Sender: FDA-Public Use
  Company Number: US-ELI_LILLY_AND_COMPANY-US201111001890

PATIENT
  Age: 76 Year
  Sex: Male

DRUGS (1)
  1. TERIPARATIDE [Suspect]
     Indication: OSTEOPOROSIS
     Dosage: 20 UG, QD
     Dates: start: 201105

REACTIONS (5)
  - Endocarditis bacterial [Unknown]
  - Aortic stenosis [Unknown]
  - Blood calcium decreased [Unknown]
  - Contusion [Unknown]
  - Lumbar vertebral fracture [Unknown]
